FAERS Safety Report 9525978 (Version 1)
Quarter: 2013Q1

REPORT INFORMATION
  Report Type: Spontaneous
  Country: US (occurrence: None)
  Receive Date: 20130314
  Receipt Date: 20130314
  Transmission Date: 20140127
  Serious: Yes (Other)
  Sender: FDA-Public Use
  Company Number: 1302USA000054

PATIENT
  Age: 57 Year
  Sex: Male
  Weight: 94.3 kg

DRUGS (7)
  1. VICTRELIS [Suspect]
     Route: 048
  2. PEGINTRON [Suspect]
  3. RIBAVIRIN [Suspect]
  4. HUMIRA (ADALIMUMAB) [Concomitant]
  5. IBUPROFEN (IBUPROFEN) TABLET 200MG [Concomitant]
  6. METHOCARBAMOL (METHOCARBAMOL) TABLET 500MG [Concomitant]
  7. OXYCODONE (OXYCODONE) CAPSULE 5MG [Concomitant]

REACTIONS (10)
  - Disturbance in attention [None]
  - Crying [None]
  - Vision blurred [None]
  - Dyspnoea [None]
  - Dysgeusia [None]
  - Diarrhoea [None]
  - Nausea [None]
  - Fatigue [None]
  - Irritability [None]
  - Dizziness [None]
